FAERS Safety Report 11658172 (Version 1)
Quarter: 2015Q4

REPORT INFORMATION
  Report Type: Spontaneous
  Country: US (occurrence: US)
  Receive Date: 20151024
  Receipt Date: 20151024
  Transmission Date: 20160304
  Serious: Yes (Other)
  Sender: FDA-Public Use
  Company Number: US-JNJFOC-20151007973

PATIENT
  Age: 20 Month
  Sex: Male
  Weight: 13.15 kg

DRUGS (1)
  1. CHILDRENS BENADRYL ALLERGY PLUS CONGESTION [Suspect]
     Active Substance: DIPHENHYDRAMINE HYDROCHLORIDE\PHENYLEPHRINE HYDROCHLORIDE
     Indication: ACCIDENTAL EXPOSURE TO PRODUCT
     Dosage: 1/2 OF A 4 OZ OF BOTTLE
     Route: 048
     Dates: start: 20151007

REACTIONS (4)
  - Overdose [Unknown]
  - Product closure issue [Unknown]
  - Accidental exposure to product [Unknown]
  - Failure of child resistant mechanism for pharmaceutical product [None]
